FAERS Safety Report 17438820 (Version 2)
Quarter: 2020Q1

REPORT INFORMATION
  Report Type: Spontaneous
  Country: US (occurrence: US)
  Receive Date: 20200220
  Receipt Date: 20200304
  Transmission Date: 20200409
  Serious: Yes (Other)
  Sender: FDA-Public Use
  Company Number: US-RECKITT BENCKISER HEALTHCARE INT LIMITED-RB-82303-2020

PATIENT
  Age: 5 Year
  Sex: Male

DRUGS (3)
  1. CHILDRENS MUCINEX NIGHT TIME MULTI-SYMPTOM COLD [Suspect]
     Active Substance: ACETAMINOPHEN\DIPHENHYDRAMINE HYDROCHLORIDE\PHENYLEPHRINE HYDROCHLORIDE
     Indication: NASAL CONGESTION
  2. CHILDRENS MUCINEX NIGHT TIME MULTI-SYMPTOM COLD [Suspect]
     Active Substance: ACETAMINOPHEN\DIPHENHYDRAMINE HYDROCHLORIDE\PHENYLEPHRINE HYDROCHLORIDE
     Indication: NASOPHARYNGITIS
  3. CHILDRENS MUCINEX NIGHT TIME MULTI-SYMPTOM COLD [Suspect]
     Active Substance: ACETAMINOPHEN\DIPHENHYDRAMINE HYDROCHLORIDE\PHENYLEPHRINE HYDROCHLORIDE
     Indication: COUGH
     Dosage: UNK UNK, SINGLE, 1/2 DOSE
     Route: 065
     Dates: start: 20200207

REACTIONS (6)
  - Nightmare [Recovered/Resolved]
  - Hallucination, visual [Recovered/Resolved]
  - Screaming [Recovered/Resolved]
  - Fear [Recovered/Resolved]
  - Underdose [Recovered/Resolved]
  - Sleep disorder [Recovered/Resolved]

NARRATIVE: CASE EVENT DATE: 202002
